FAERS Safety Report 11157115 (Version 4)
Quarter: 2015Q3

REPORT INFORMATION
  Report Type: Spontaneous
  Country: US (occurrence: US)
  Receive Date: 20150602
  Receipt Date: 20150901
  Transmission Date: 20151125
  Serious: No
  Sender: FDA-Public Use
  Company Number: US-GLAXOSMITHKLINE-US2015GSK075555

PATIENT
  Age: 46 Year
  Sex: Female
  Weight: 61.2 kg

DRUGS (12)
  1. TAFINLAR [Suspect]
     Active Substance: DABRAFENIB MESYLATE
     Indication: MALIGNANT MELANOMA
     Dosage: 150 MG, BID
     Route: 048
     Dates: start: 20150507
  2. MEKINIST [Suspect]
     Active Substance: TRAMETINIB DIMETHYL SULFOXIDE
     Indication: BRAIN NEOPLASM MALIGNANT
     Dosage: 2 MG, QD
     Route: 048
     Dates: start: 20150508, end: 20150511
  3. AMOXICILLIN. [Concomitant]
     Active Substance: AMOXICILLIN
  4. HYDROCODONE [Concomitant]
     Active Substance: HYDROCODONE
  5. MEKINIST [Suspect]
     Active Substance: TRAMETINIB DIMETHYL SULFOXIDE
     Indication: MALIGNANT MELANOMA
     Dosage: 2 MG, QD
     Route: 048
     Dates: start: 20150507
  6. TAFINLAR [Suspect]
     Active Substance: DABRAFENIB MESYLATE
     Indication: BRAIN NEOPLASM
     Dosage: 150 MG, BID
     Route: 048
     Dates: start: 20150521
  7. DIFLUCAN [Concomitant]
     Active Substance: FLUCONAZOLE
  8. PRILOSEC [Concomitant]
     Active Substance: OMEPRAZOLE MAGNESIUM
  9. DEXAMETHASONE. [Concomitant]
     Active Substance: DEXAMETHASONE
  10. TRIAMCINOLONE [Concomitant]
     Active Substance: TRIAMCINOLONE
  11. CIPRO [Concomitant]
     Active Substance: CIPROFLOXACIN HYDROCHLORIDE
  12. OXYCODONE [Concomitant]
     Active Substance: OXYCODONE

REACTIONS (13)
  - Hypoaesthesia oral [Unknown]
  - Muscular weakness [Unknown]
  - Headache [Unknown]
  - Asthenia [Unknown]
  - Urinary tract infection [Unknown]
  - Fatigue [Unknown]
  - Ear pain [Unknown]
  - Feeling cold [Unknown]
  - Hypertension [Unknown]
  - Toothache [Unknown]
  - Pain in extremity [Unknown]
  - Hypoaesthesia [Unknown]
  - Rash [Unknown]

NARRATIVE: CASE EVENT DATE: 20150521
